FAERS Safety Report 7045825-1 (Version None)
Quarter: 2010Q4

REPORT INFORMATION
  Report Type: 
  Country: None (occurrence: None)
  Receive Date: 20101014
  Receipt Date: 20101008
  Transmission Date: 20110411
  Serious: Yes (Hospitalization, Disabling, Other)
  Sender: FDA-Public Use
  Company Number: US-B.I. PHARMACEUTICALS,INC./RIDGEFIELD-2010-BP-11439BP

PATIENT
  Sex: Male

DRUGS (17)
  1. SPIRIVA [Suspect]
     Indication: ASTHMA
     Dosage: 18 MCG
     Route: 055
     Dates: start: 20090101
  2. SPIRIVA [Suspect]
     Indication: EMPHYSEMA
  3. LISINOPRIL [Concomitant]
     Indication: HYPERTENSION
  4. KLOR-CON [Concomitant]
     Indication: ROUTINE HEALTH MAINTENANCE
  5. SEROQUEL [Concomitant]
     Indication: ANXIETY
  6. SEROQUEL [Concomitant]
     Indication: DEPRESSION
  7. ZOCOR [Concomitant]
     Indication: BLOOD CHOLESTEROL INCREASED
  8. CARDURA [Concomitant]
     Indication: HYPERTENSION
  9. BREWERS YEAST [Concomitant]
     Indication: ROUTINE HEALTH MAINTENANCE
  10. VITAMIN D3 [Concomitant]
     Indication: ROUTINE HEALTH MAINTENANCE
  11. NIACIN [Concomitant]
     Indication: ROUTINE HEALTH MAINTENANCE
  12. IRON [Concomitant]
     Indication: ROUTINE HEALTH MAINTENANCE
  13. LOVAZA [Concomitant]
     Indication: ROUTINE HEALTH MAINTENANCE
  14. COQ 10 [Concomitant]
     Indication: ROUTINE HEALTH MAINTENANCE
  15. ASPIRIN [Concomitant]
     Indication: ROUTINE HEALTH MAINTENANCE
  16. XANAX [Concomitant]
     Indication: ANXIETY
  17. XANAX [Concomitant]
     Indication: DEPRESSION

REACTIONS (3)
  - BLINDNESS [None]
  - TRANSIENT ISCHAEMIC ATTACK [None]
  - VISION BLURRED [None]
